FAERS Safety Report 12765320 (Version 4)
Quarter: 2016Q4

REPORT INFORMATION
  Report Type: Spontaneous
  Country: US (occurrence: US)
  Receive Date: 20160921
  Receipt Date: 20161114
  Transmission Date: 20170207
  Serious: No
  Sender: FDA-Public Use
  Company Number: US-PFIZER INC-2016436180

PATIENT
  Age: 89 Year
  Sex: Female
  Weight: 46.26 kg

DRUGS (3)
  1. IBRANCE [Suspect]
     Active Substance: PALBOCICLIB
     Indication: BREAST CANCER METASTATIC
     Dosage: 75 MG, CYCLIC (DAYS 1-21 Q28 DAYS)
     Route: 048
     Dates: start: 20160618
  2. IBRANCE [Suspect]
     Active Substance: PALBOCICLIB
     Dosage: 75 MG, CYCLIC (DAYS 1-21 Q28 DAYS)
     Route: 048
     Dates: start: 20160618
  3. IBRANCE [Suspect]
     Active Substance: PALBOCICLIB
     Dosage: 75 MG, ALTERNATE DAY (DAYS 1-21 Q28 DAYS)
     Route: 048
     Dates: start: 20160618

REACTIONS (9)
  - Poor peripheral circulation [Unknown]
  - Off label use [Unknown]
  - Skin discolouration [Unknown]
  - Dry skin [Unknown]
  - Rash macular [Unknown]
  - Rash pruritic [Unknown]
  - Skin exfoliation [Unknown]
  - Neoplasm progression [Unknown]
  - Pruritus [Unknown]

NARRATIVE: CASE EVENT DATE: 2016
